FAERS Safety Report 15741698 (Version 1)
Quarter: 2018Q4

REPORT INFORMATION
  Report Type: Spontaneous
  Country: FR (occurrence: FR)
  Receive Date: 20181219
  Receipt Date: 20181219
  Transmission Date: 20190205
  Serious: Yes (Hospitalization)
  Sender: FDA-Public Use
  Company Number: FR-TEVA-2018-FR-988131

PATIENT
  Age: 80 Year
  Sex: Female
  Weight: 83 kg

DRUGS (9)
  1. LIPTRUZET [Suspect]
     Active Substance: ATORVASTATIN CALCIUM\EZETIMIBE
     Indication: HYPERTENSION
     Dosage: 1 DOSAGE FORMS DAILY; 1 EVENING
     Route: 048
     Dates: end: 20181119
  2. METFORMINE [Suspect]
     Active Substance: METFORMIN HYDROCHLORIDE
     Indication: DIABETES MELLITUS
     Dosage: 500 MILLIGRAM DAILY; THE EVENING
     Route: 048
     Dates: end: 20181119
  3. ADANCOR 20 MG, COMPRIM? [Suspect]
     Active Substance: NICORANDIL
     Indication: ANGINA PECTORIS
     Dosage: 40 MILLIGRAM DAILY;
     Route: 048
     Dates: end: 20181119
  4. DOLIPRANE [Suspect]
     Active Substance: ACETAMINOPHEN
     Indication: PAIN
     Dosage: 2000 MILLIGRAM DAILY; 500 MG 2 CAPSULE MORNING AND EVENING
     Route: 048
     Dates: end: 20181119
  5. SPASFON LYOC 160 MG, LYOPHILISAT ORAL [Suspect]
     Active Substance: PHLOROGLUCINOL
     Indication: PAIN
     Dosage: 1 TO 3 / DAY IF NEEDED
     Route: 048
     Dates: start: 20181112, end: 20181119
  6. DOMPERIDONE [Suspect]
     Active Substance: DOMPERIDONE
     Indication: PAIN
     Dosage: 1 CP 2 TO 3X / DAY IF NEEDED
     Route: 048
     Dates: start: 20181112, end: 20181119
  7. TAREG [Suspect]
     Active Substance: VALSARTAN
     Indication: HYPERTENSION
     Dosage: 80 MILLIGRAM DAILY; THE MORNING
     Route: 048
     Dates: end: 20181119
  8. LAMALINE (ACETAMINOPHEN\BELLADONNA LEAF\CAFFEINE\OPIUM) [Suspect]
     Active Substance: ACETAMINOPHEN\BELLADONNA LEAF\CAFFEINE\OPIUM
     Indication: PAIN
     Dosage: IF NECESSARY
     Route: 054
     Dates: end: 20181119
  9. NORMACOL [Suspect]
     Active Substance: HERBALS\KARAYA GUM
     Indication: CONSTIPATION
     Dosage: 2 DOSAGE FORMS DAILY; 1 SACHET TWICE A DAY
     Route: 048
     Dates: end: 20181119

REACTIONS (2)
  - Cholestasis [Recovering/Resolving]
  - Cell death [Recovering/Resolving]

NARRATIVE: CASE EVENT DATE: 20181119
